FAERS Safety Report 4758161-0 (Version None)
Quarter: 2005Q3

REPORT INFORMATION
  Report Type: 
  Country: None (occurrence: None)
  Receive Date: 20050831
  Receipt Date: 20050314
  Transmission Date: 20060218
  Serious: Yes (Other)
  Sender: FDA-Public Use
  Company Number: US-MERCK-0503USA02932

PATIENT
  Age: 66 Year
  Sex: Male
  Weight: 77 kg

DRUGS (13)
  1. CEPHALEXIN HYDROCHLORIDE [Concomitant]
     Route: 065
  2. ULTRACET [Concomitant]
     Route: 065
  3. VIOXX [Suspect]
     Indication: SPONDYLITIS
     Route: 048
     Dates: start: 19990101, end: 20040101
  4. COZAAR [Concomitant]
     Route: 065
     Dates: start: 20021227
  5. LIPITOR [Concomitant]
     Route: 065
     Dates: start: 20010309
  6. FLOMAX (MORNIFLUMATE) [Concomitant]
     Route: 065
  7. BUSPAR [Concomitant]
     Route: 065
  8. CLARITIN [Concomitant]
     Route: 065
  9. CIPROFLOXACIN HCL [Concomitant]
     Route: 065
  10. APAP TAB [Concomitant]
     Route: 065
  11. TYLENOL W/ CODEINE NO. 3 [Concomitant]
     Route: 065
  12. ATENOLOL MSD [Concomitant]
     Route: 065
  13. MACROBID [Concomitant]
     Route: 065

REACTIONS (6)
  - ANXIETY [None]
  - BLOOD CHOLESTEROL INCREASED [None]
  - DYSPNOEA [None]
  - HYPERTENSION [None]
  - MYOCARDIAL INFARCTION [None]
  - PNEUMOCONIOSIS [None]
